FAERS Safety Report 7485961-9 (Version None)
Quarter: 2011Q2

REPORT INFORMATION
  Report Type: 
  Country: None (occurrence: None)
  Receive Date: 20110517
  Receipt Date: 20110511
  Transmission Date: 20111010
  Serious: Yes (Hospitalization, Other)
  Sender: FDA-Public Use
  Company Number: JP-PFIZER INC-2011002053

PATIENT
  Age: 51 Year
  Sex: Female
  Weight: 55 kg

DRUGS (3)
  1. EPIRUBICIN HYDROCHLORIDE [Suspect]
     Indication: BREAST CANCER
     Dosage: 100 MG, 1X/DAY
     Route: 041
     Dates: start: 20110105, end: 20110105
  2. CYCLOPHOSPHAMIDE [Concomitant]
     Indication: BREAST CANCER
     Dosage: 930 MG, 1X/DAY
     Dates: start: 20110105, end: 20110105
  3. DECADRON [Concomitant]
     Indication: NAUSEA
     Dosage: 12 MG, 1X/DAY
     Dates: start: 20110105, end: 20110105

REACTIONS (4)
  - OCULAR HYPERAEMIA [None]
  - EYE SWELLING [None]
  - EYE PAIN [None]
  - VOMITING [None]
